FAERS Safety Report 13453650 (Version 1)
Quarter: 2017Q2

REPORT INFORMATION
  Report Type: Spontaneous
  Country: US (occurrence: US)
  Receive Date: 20170418
  Receipt Date: 20170418
  Transmission Date: 20170830
  Serious: No
  Sender: FDA-Public Use
  Company Number: US-ALLERGAN-1660686US

PATIENT
  Sex: Female

DRUGS (4)
  1. LUMIGAN [Suspect]
     Active Substance: BIMATOPROST
     Dosage: UNK
     Route: 047
  2. COSOPT [Concomitant]
     Active Substance: DORZOLAMIDE HYDROCHLORIDE\TIMOLOL MALEATE
     Indication: INTRAOCULAR PRESSURE INCREASED
     Dosage: 1 GTT, QAM
     Route: 047
  3. LUMIGAN [Suspect]
     Active Substance: BIMATOPROST
     Dosage: 2 GTT, BID
     Route: 047
     Dates: start: 2014
  4. LUMIGAN [Suspect]
     Active Substance: BIMATOPROST
     Indication: INTRAOCULAR PRESSURE INCREASED
     Dosage: 2 GTT, BID
     Route: 047
     Dates: start: 2014

REACTIONS (8)
  - Lacrimation increased [Not Recovered/Not Resolved]
  - Ocular hyperaemia [Not Recovered/Not Resolved]
  - Visual impairment [Not Recovered/Not Resolved]
  - Growth of eyelashes [Not Recovered/Not Resolved]
  - Eye infection [Recovered/Resolved]
  - Expired product administered [Unknown]
  - Eye pruritus [Recovering/Resolving]
  - Inappropriate schedule of drug administration [Unknown]

NARRATIVE: CASE EVENT DATE: 2014
